FAERS Safety Report 18823373 (Version 1)
Quarter: 2021Q1

REPORT INFORMATION
  Report Type: Spontaneous
  Country: US (occurrence: US)
  Receive Date: 20210201
  Receipt Date: 20210201
  Transmission Date: 20210419
  Serious: No
  Sender: FDA-Public Use
  Company Number: US-ABBVIE-20K-163-3227814-00

PATIENT
  Age: 52 Year
  Sex: Female

DRUGS (1)
  1. HUMIRA [Suspect]
     Active Substance: ADALIMUMAB
     Indication: RHEUMATOID ARTHRITIS
     Route: 058
     Dates: start: 20190904

REACTIONS (6)
  - Incorrect dose administered [Unknown]
  - Confusional state [Unknown]
  - Wrong technique in product usage process [Unknown]
  - Stress [Unknown]
  - Erythema [Unknown]
  - Anxiety [Unknown]

NARRATIVE: CASE EVENT DATE: 20200106
